FAERS Safety Report 13837798 (Version 1)
Quarter: 2017Q3

REPORT INFORMATION
  Report Type: Report from Study
  Country: None (occurrence: ZA)
  Receive Date: 20170806
  Receipt Date: 20170806
  Transmission Date: 20171127
  Serious: Yes (Hospitalization)
  Sender: FDA-Public Use
  Company Number: ZA-ABBVIE-17K-143-2059154-00

PATIENT
  Age: 34 Year
  Sex: Female
  Weight: 115 kg

DRUGS (1)
  1. HUMIRA [Suspect]
     Active Substance: ADALIMUMAB
     Indication: CROHN^S DISEASE
     Dosage: LOADING DOSE
     Route: 058
     Dates: start: 20170721, end: 20170721

REACTIONS (2)
  - Intracranial pressure increased [Unknown]
  - Headache [Unknown]

NARRATIVE: CASE EVENT DATE: 201707
